FAERS Safety Report 9391362 (Version 1)
Quarter: 2013Q3

REPORT INFORMATION
  Report Type: Spontaneous
  Country: US (occurrence: None)
  Receive Date: 20130705
  Receipt Date: 20130705
  Transmission Date: 20140515
  Serious: Yes (Hospitalization)
  Sender: FDA-Public Use
  Company Number: 2013-11492

PATIENT
  Age: 27 Year
  Sex: Male
  Weight: 59 kg

DRUGS (2)
  1. FENTANYL CITRATE (WATSON LABORATORIES) [Suspect]
     Indication: BREAKTHROUGH PAIN
     Dosage: BUCCAL
     Route: 048
     Dates: start: 20130601, end: 20130608
  2. FENTORA [Suspect]
     Indication: BREAKTHROUGH PAIN
     Route: 002

REACTIONS (3)
  - Abdominal pain upper [None]
  - Nausea [None]
  - Vomiting [None]
